FAERS Safety Report 24680310 (Version 1)
Quarter: 2024Q4

REPORT INFORMATION
  Report Type: Spontaneous
  Country: US (occurrence: US)
  Receive Date: 20241129
  Receipt Date: 20241129
  Transmission Date: 20250115
  Serious: Yes (Other)
  Sender: SANOFI AVENTIS
  Company Number: US-SA-2024SA348127

PATIENT
  Age: 43 Year
  Sex: Male

DRUGS (2)
  1. REZUROCK [Suspect]
     Active Substance: BELUMOSUDIL
     Indication: Acute lymphocytic leukaemia
     Dosage: 200 MG, BID
     Route: 048
     Dates: start: 20240424
  2. JAKAFI [Suspect]
     Active Substance: RUXOLITINIB
     Dosage: UNK

REACTIONS (10)
  - Osteonecrosis [Unknown]
  - Gastrointestinal disorder [Recovered/Resolved]
  - Pain [Unknown]
  - Energy increased [Unknown]
  - General physical health deterioration [Unknown]
  - Emotional disorder [Unknown]
  - Dyspnoea [Unknown]
  - Drug ineffective [Unknown]
  - Product use in unapproved indication [Unknown]
  - Inappropriate schedule of product administration [Unknown]

NARRATIVE: CASE EVENT DATE: 20240424
